FAERS Safety Report 10897489 (Version 1)
Quarter: 2015Q1

REPORT INFORMATION
  Report Type: Spontaneous
  Country: US (occurrence: US)
  Receive Date: 20150309
  Receipt Date: 20150309
  Transmission Date: 20150721
  Serious: Yes (Hospitalization)
  Sender: FDA-Public Use
  Company Number: US-PFIZER INC-2015080635

PATIENT
  Age: 22 Year
  Sex: Female

DRUGS (1)
  1. SERTRALINE HCL [Suspect]
     Active Substance: SERTRALINE HYDROCHLORIDE
     Dosage: 50 MG, DAILY

REACTIONS (5)
  - Fatigue [Recovered/Resolved]
  - Rhabdomyolysis [Recovered/Resolved]
  - Swelling [Recovered/Resolved]
  - Haematuria [Recovered/Resolved]
  - Myalgia [Recovered/Resolved]
